FAERS Safety Report 21925768 (Version 1)
Quarter: 2023Q1

REPORT INFORMATION
  Report Type: Other
  Country: GR (occurrence: GR)
  Receive Date: 20230130
  Receipt Date: 20230130
  Transmission Date: 20230418
  Serious: Yes (Other)
  Sender: FDA-Public Use
  Company Number: GR-CELLTRION INC.-2023GR001546

PATIENT

DRUGS (7)
  1. RITUXIMAB [Suspect]
     Active Substance: RITUXIMAB
     Indication: Richter^s syndrome
     Dosage: DRUG SEPARATE DOSAGE NUMBER: 1
  2. POLIVY [Suspect]
     Active Substance: POLATUZUMAB VEDOTIN-PIIQ
     Indication: Richter^s syndrome
     Dosage: DRUG SEPARATE DOSAGE NUMBER: 1
  3. DOXORUBICIN HYDROCHLORIDE [Suspect]
     Active Substance: DOXORUBICIN HYDROCHLORIDE
     Indication: Richter^s syndrome
     Dosage: DRUG SEPARATE DOSAGE NUMBER:1
  4. PREDNISOLONE [Suspect]
     Active Substance: PREDNISOLONE
     Indication: Richter^s syndrome
     Dosage: DRUG SEPARATE DOSAGE NUMBER: 1
  5. VINCRISTINE [Suspect]
     Active Substance: VINCRISTINE
     Indication: Richter^s syndrome
     Dosage: DRUG SEPARATE DOSAGE NUMBER: 1
  6. IBRUTINIB [Suspect]
     Active Substance: IBRUTINIB
     Indication: Richter^s syndrome
     Dosage: DRUG SEPARATE DOSAGE NUMBER: 1
  7. CYCLOPHOSPHAMIDE [Suspect]
     Active Substance: CYCLOPHOSPHAMIDE
     Indication: Richter^s syndrome
     Dosage: DRUG SEPARATE DOSAGE NUMBER: 1

REACTIONS (3)
  - COVID-19 [Recovered/Resolved]
  - Richter^s syndrome [Unknown]
  - Disease progression [Unknown]
